FAERS Safety Report 6857497-7 (Version None)
Quarter: 2010Q3

REPORT INFORMATION
  Report Type: 
  Country: None (occurrence: None)
  Receive Date: 20100719
  Receipt Date: 20100708
  Transmission Date: 20110219
  Serious: Yes (Death)
  Sender: FDA-Public Use
  Company Number: JP-WATSON-2010-09316

PATIENT
  Age: 37 Year
  Sex: Male

DRUGS (3)
  1. PREDNISOLONE (WATSON LABORATORIES) [Suspect]
     Indication: CROHN'S DISEASE
     Dosage: UNK
  2. AZATHIOPRINE [Suspect]
     Indication: CROHN'S DISEASE
     Dosage: UNK
  3. AMINOSALICYLIC ACID [Suspect]
     Indication: CROHN'S DISEASE
     Dosage: UNK

REACTIONS (1)
  - HEPATIC NEOPLASM MALIGNANT [None]
